FAERS Safety Report 21094674 (Version 1)
Quarter: 2022Q3

REPORT INFORMATION
  Report Type: Spontaneous
  Country: US (occurrence: US)
  Receive Date: 20220718
  Receipt Date: 20220718
  Transmission Date: 20221026
  Serious: Yes (Hospitalization)
  Sender: FDA-Public Use
  Company Number: US-MYLANLABS-2022M1078707

PATIENT
  Age: 18 Year
  Sex: Female

DRUGS (12)
  1. ESTRADIOL [Suspect]
     Active Substance: ESTRADIOL
     Indication: Contraception
     Dosage: 2 MILLIGRAM, TID, RECEIVED ESTRADIOL 2MG, 3 TIMES DAILY
     Route: 065
  2. URSODIOL [Suspect]
     Active Substance: URSODIOL
     Indication: Pruritus
     Dosage: UNK
     Route: 065
  3. ETHINYL ESTRADIOL [Suspect]
     Active Substance: ETHINYL ESTRADIOL
     Indication: Contraception
     Dosage: 20 MICROGRAM, QD
     Route: 048
  4. ETHINYL ESTRADIOL [Suspect]
     Active Substance: ETHINYL ESTRADIOL
     Indication: Contraception
     Dosage: UNK, QD
     Route: 065
  5. CONJUGATED ESTROGENS [Suspect]
     Active Substance: ESTROGENS, CONJUGATED
     Indication: Contraception
     Dosage: 75 MILLIGRAM
     Route: 042
  6. NORGESTIMATE [Suspect]
     Active Substance: NORGESTIMATE
     Indication: Contraception
     Dosage: UNK
     Route: 065
  7. CHOLESTYRAMINE [Suspect]
     Active Substance: CHOLESTYRAMINE
     Indication: Pruritus
     Dosage: UNK
     Route: 065
  8. CHOLESTYRAMINE [Suspect]
     Active Substance: CHOLESTYRAMINE
     Dosage: UNK (DOSE INCREASED AND THEN DISCONTINUED)
     Route: 065
  9. MEDROXYPROGESTERONE [Concomitant]
     Active Substance: MEDROXYPROGESTERONE
     Indication: Contraception
     Dosage: 10 MILLIGRAM, QD
     Route: 065
  10. HYDROXYZINE [Concomitant]
     Active Substance: HYDROXYZINE HYDROCHLORIDE
     Indication: Product used for unknown indication
     Dosage: UNK
     Route: 065
  11. NORETHINDRONE [Concomitant]
     Active Substance: NORETHINDRONE
     Indication: Contraception
     Dosage: 1 MILLIGRAM, QD
     Route: 048
  12. FERROUS SULFATE [Concomitant]
     Active Substance: FERROUS SULFATE
     Indication: Contraception
     Dosage: 75 MILLIGRAM, QD
     Route: 048

REACTIONS (3)
  - Drug-induced liver injury [Unknown]
  - Vanishing bile duct syndrome [Unknown]
  - Drug ineffective [Unknown]
